FAERS Safety Report 23425041 (Version 1)
Quarter: 2024Q1

REPORT INFORMATION
  Report Type: Spontaneous
  Country: GB (occurrence: GB)
  Receive Date: 20240121
  Receipt Date: 20240121
  Transmission Date: 20240410
  Serious: Yes (Life-Threatening)
  Sender: FDA-Public Use
  Company Number: None

PATIENT
  Age: 5 Year
  Sex: Male

DRUGS (1)
  1. CLARITHROMYCIN [Suspect]
     Active Substance: CLARITHROMYCIN
     Indication: Localised infection
     Dosage: UNK, BID
     Route: 065
     Dates: start: 2024

REACTIONS (1)
  - Swelling [Recovered/Resolved]

NARRATIVE: CASE EVENT DATE: 20240115
